FAERS Safety Report 14925128 (Version 1)
Quarter: 2018Q2

REPORT INFORMATION
  Report Type: Spontaneous
  Country: US (occurrence: US)
  Receive Date: 20180504
  Receipt Date: 20180504
  Transmission Date: 20180711
  Serious: Yes (Death)
  Sender: FDA-Public Use
  Company Number: None

PATIENT
  Sex: Male

DRUGS (29)
  1. ALLOPURINOL. [Concomitant]
     Active Substance: ALLOPURINOL
  2. VALACYCLOVIR [Concomitant]
     Active Substance: VALACYCLOVIR HYDROCHLORIDE
  3. INSULIN SYRG [Concomitant]
  4. DICYCLOMINE [Concomitant]
     Active Substance: DICYCLOMINE HYDROCHLORIDE
  5. AMOX/K CLAV [Concomitant]
     Active Substance: AMOXICILLIN\CLAVULANATE POTASSIUM
  6. OXYCODONE AND ACETAMINOPHEN [Concomitant]
     Active Substance: ACETAMINOPHEN\OXYCODONE HYDROCHLORIDE
  7. NYSTATIN. [Concomitant]
     Active Substance: NYSTATIN
  8. CYCLOSPORINE. [Concomitant]
     Active Substance: CYCLOSPORINE
  9. HUMALOG [Concomitant]
     Active Substance: INSULIN LISPRO
  10. ROSUVASTATIN. [Concomitant]
     Active Substance: ROSUVASTATIN
  11. MYCOPHENOLATE 250MG [Suspect]
     Active Substance: MYCOPHENOLIC ACID
     Indication: TRANSPLANT
     Route: 048
     Dates: start: 20160805
  12. CLOPIDOGREL [Concomitant]
     Active Substance: CLOPIDOGREL BISULFATE
  13. ZOLPIDEM [Concomitant]
     Active Substance: ZOLPIDEM\ZOLPIDEM TARTRATE
  14. DICLOFENAC [Concomitant]
     Active Substance: DICLOFENAC
  15. OSELTAMIVIR [Concomitant]
     Active Substance: OSELTAMIVIR
  16. AMOXICILLIN. [Concomitant]
     Active Substance: AMOXICILLIN
  17. OMEPRAZOLE. [Concomitant]
     Active Substance: OMEPRAZOLE
  18. FREESTYLE TES LITE [Concomitant]
  19. LIDOCAINE. [Concomitant]
     Active Substance: LIDOCAINE
  20. VALGANCICLOV [Concomitant]
  21. ADVAIR DISKU [Concomitant]
  22. METOPROL SUC [Concomitant]
  23. CHLORHEX GLU SOL [Concomitant]
  24. LANTUS [Concomitant]
     Active Substance: INSULIN GLARGINE
  25. MYCOPHENOLATE 500MG [Suspect]
     Active Substance: MYCOPHENOLIC ACID
     Indication: TRANSPLANT
     Route: 048
     Dates: start: 20160805
  26. WARFARIN [Concomitant]
     Active Substance: WARFARIN
  27. ALCOHOL PREP PAD [Concomitant]
     Active Substance: ISOPROPYL ALCOHOL
  28. SODIUM BICAR [Concomitant]
  29. TRAVEL LANCE [Concomitant]

REACTIONS (1)
  - Death [None]
